FAERS Safety Report 4343021-X (Version None)
Quarter: 2004Q2

REPORT INFORMATION
  Report Type: 
  Country: None (occurrence: None)
  Receive Date: 20040416
  Receipt Date: 20040407
  Transmission Date: 20050107
  Serious: Yes (Hospitalization)
  Sender: FDA-Public Use
  Company Number: 200410237BNE

PATIENT
  Age: 95 Year
  Sex: Male

DRUGS (5)
  1. ASPIRIN [Suspect]
     Dosage: 75 MG, TOTAL DAILY, ORAL
     Route: 048
     Dates: start: 19980101, end: 20040301
  2. CELEBREX [Suspect]
     Indication: ANALGESIC EFFECT
     Dosage: 20 MG, TOTAL DAILY, ORAL
     Route: 048
     Dates: start: 20020101, end: 20040301
  3. ZOLPIDEM [Concomitant]
  4. NIFEDIPINE [Concomitant]
  5. UNSPECIFIED ORAL STEROID [Concomitant]

REACTIONS (5)
  - GASTRIC ULCER [None]
  - HAEMATEMESIS [None]
  - LOWER RESPIRATORY TRACT INFECTION [None]
  - MELAENA [None]
  - OESOPHAGITIS ULCERATIVE [None]
